FAERS Safety Report 14496285 (Version 3)
Quarter: 2018Q2

REPORT INFORMATION
  Report Type: Spontaneous
  Country: US (occurrence: US)
  Receive Date: 20180207
  Receipt Date: 20180627
  Transmission Date: 20180711
  Serious: No
  Sender: FDA-Public Use
  Company Number: US-ELI_LILLY_AND_COMPANY-US201802001330

PATIENT
  Age: 56 Year
  Sex: Male

DRUGS (3)
  1. CAFFEINE. [Concomitant]
     Active Substance: CAFFEINE
  2. TALTZ [Suspect]
     Active Substance: IXEKIZUMAB
     Dosage: UNK, UNKNOWN
     Route: 058
     Dates: start: 201803
  3. TALTZ [Suspect]
     Active Substance: IXEKIZUMAB
     Indication: PSORIASIS
     Dosage: UNK, UNKNOWN
     Route: 058
     Dates: start: 201611

REACTIONS (16)
  - Gait inability [Unknown]
  - Psoriasis [Unknown]
  - Ligament sprain [Unknown]
  - Skin mass [Unknown]
  - Underdose [Unknown]
  - Inappropriate schedule of drug administration [Unknown]
  - Arthralgia [Not Recovered/Not Resolved]
  - Myalgia [Not Recovered/Not Resolved]
  - Pruritus [Not Recovered/Not Resolved]
  - Joint swelling [Unknown]
  - Joint swelling [Not Recovered/Not Resolved]
  - Injection site haemorrhage [Unknown]
  - Injection site pain [Unknown]
  - Gout [Not Recovered/Not Resolved]
  - Rash [Unknown]
  - Limb injury [Unknown]

NARRATIVE: CASE EVENT DATE: 20180407
